FAERS Safety Report 24011372 (Version 2)
Quarter: 2024Q4

REPORT INFORMATION
  Report Type: Spontaneous
  Country: CA (occurrence: CA)
  Receive Date: 20240625
  Receipt Date: 20241108
  Transmission Date: 20250114
  Serious: Yes (Other)
  Sender: CSL BEHRING
  Company Number: CA-BEH-2024171354

PATIENT
  Age: 79 Year
  Sex: Female
  Weight: 77 kg

DRUGS (19)
  1. ALBUREX [Suspect]
     Active Substance: ALBUMIN HUMAN
     Dosage: 125 ML
     Route: 042
     Dates: start: 20240414, end: 20240414
  2. ALBUREX [Suspect]
     Active Substance: ALBUMIN HUMAN
     Dosage: UNK
     Route: 065
     Dates: start: 20240414, end: 20240414
  3. ALBUREX [Suspect]
     Active Substance: ALBUMIN HUMAN
     Dosage: 5 ML
     Route: 042
     Dates: end: 20240423
  4. MAGNESIUM [Suspect]
     Active Substance: MAGNESIUM
     Dosage: 1 G
     Route: 042
     Dates: start: 20240414
  5. CALCIUM CHLORIDE [Suspect]
     Active Substance: CALCIUM CHLORIDE
     Dosage: 1 G
     Route: 042
     Dates: start: 20240414
  6. CEFAZOLIN SODIUM [Concomitant]
     Active Substance: CEFAZOLIN SODIUM
     Dosage: UNK
     Dates: start: 20240414
  7. ROCURONIUM [Concomitant]
     Active Substance: ROCURONIUM BROMIDE
     Indication: Premedication
     Dosage: 100 MG, OVER 3 DOSES
     Route: 042
     Dates: start: 20240423, end: 20240423
  8. ROCURONIUM [Concomitant]
     Active Substance: ROCURONIUM BROMIDE
     Dosage: UNK
     Dates: start: 20240414
  9. PHENYLEPHRINE [Concomitant]
     Active Substance: PHENYLEPHRINE HYDROCHLORIDE
     Indication: Premedication
     Dosage: UNK
     Dates: start: 20240423, end: 20240423
  10. PHENYLEPHRINE [Concomitant]
     Active Substance: PHENYLEPHRINE HYDROCHLORIDE
     Dosage: UNK
     Dates: start: 20240414
  11. PROPOFOL [Concomitant]
     Active Substance: PROPOFOL
     Indication: Premedication
     Dosage: UNK
     Dates: start: 20240423
  12. PROPOFOL [Concomitant]
     Active Substance: PROPOFOL
     Dosage: UNK
     Dates: start: 20240414
  13. TYLENOL [Concomitant]
     Active Substance: ACETAMINOPHEN
     Indication: Premedication
     Dosage: UNK
     Dates: start: 20240423
  14. PROPRANOLOL HYDROCHLORIDE [Concomitant]
     Active Substance: PROPRANOLOL HYDROCHLORIDE
     Indication: Premedication
     Dosage: 1 MG, QD
     Route: 042
     Dates: start: 20240423, end: 20240423
  15. SUCCINYLCHOLINE [Concomitant]
     Active Substance: SUCCINYLCHOLINE\SUCCINYLCHOLINE CHLORIDE
     Dosage: UNK
     Dates: start: 20240414
  16. METRONIDAZOLE [Concomitant]
     Active Substance: METRONIDAZOLE
     Dosage: UNK
     Dates: start: 20240414
  17. REMIFENTANIL [Concomitant]
     Active Substance: REMIFENTANIL
     Dosage: UNK
     Dates: start: 20240414
  18. EPHEDRINE [Concomitant]
     Active Substance: EPHEDRINE
     Dosage: UNK
     Dates: start: 20240414
  19. MAGNESIUM [Concomitant]
     Active Substance: MAGNESIUM
     Dosage: UNK
     Dates: start: 20240414

REACTIONS (9)
  - Anaphylactic shock [Recovered/Resolved]
  - Hypotension [Recovered/Resolved]
  - Circulatory collapse [Recovered/Resolved]
  - Tryptase increased [Recovered/Resolved]
  - Pulse absent [Recovered/Resolved]
  - Hypersensitivity [Recovered/Resolved]
  - Hypoxia [Recovered/Resolved]
  - Tachycardia [Recovered/Resolved]
  - Administration site reaction [Unknown]

NARRATIVE: CASE EVENT DATE: 20240414
